FAERS Safety Report 16096349 (Version 9)
Quarter: 2020Q4

REPORT INFORMATION
  Report Type: Report from Study
  Country: CA (occurrence: CA)
  Receive Date: 20190320
  Receipt Date: 20201202
  Transmission Date: 20210113
  Serious: Yes (Other)
  Sender: FDA-Public Use
  Company Number: CA-OTSUKA-2019_007755

PATIENT
  Age: 50 Year
  Sex: Female

DRUGS (4)
  1. TOLVAPTAN [Suspect]
     Active Substance: TOLVAPTAN
     Indication: CONGENITAL CYSTIC KIDNEY DISEASE
     Dosage: 45 MG, QD
     Route: 048
     Dates: start: 20181227, end: 20190221
  2. TOLVAPTAN [Suspect]
     Active Substance: TOLVAPTAN
     Dosage: 15 MG, QD
     Route: 048
     Dates: start: 20181227, end: 20190221
  3. TOLVAPTAN [Suspect]
     Active Substance: TOLVAPTAN
     Dosage: 60 MG, QD
     Route: 048
     Dates: start: 20190222
  4. TOLVAPTAN [Suspect]
     Active Substance: TOLVAPTAN
     Dosage: 30 MG, QD
     Route: 048
     Dates: start: 20190222

REACTIONS (17)
  - Product dose omission issue [Unknown]
  - Nocturia [Not Recovered/Not Resolved]
  - Polydipsia [Not Recovered/Not Resolved]
  - Postmenopausal haemorrhage [Recovered/Resolved]
  - Inappropriate schedule of product administration [Unknown]
  - Renal cyst [Not Recovered/Not Resolved]
  - Palpitations [Not Recovered/Not Resolved]
  - Urine output increased [Unknown]
  - Polyuria [Not Recovered/Not Resolved]
  - Memory impairment [Not Recovered/Not Resolved]
  - Peripheral swelling [Unknown]
  - Pollakiuria [Unknown]
  - Somnolence [Unknown]
  - Pain in extremity [Unknown]
  - Fatigue [Not Recovered/Not Resolved]
  - Impaired work ability [Not Recovered/Not Resolved]
  - Dizziness [Not Recovered/Not Resolved]

NARRATIVE: CASE EVENT DATE: 20181227
